FAERS Safety Report 9695620 (Version 1)
Quarter: 2013Q4

REPORT INFORMATION
  Report Type: Spontaneous
  Country: CA (occurrence: CA)
  Receive Date: 20131119
  Receipt Date: 20131119
  Transmission Date: 20140711
  Serious: Yes (Other)
  Sender: FDA-Public Use
  Company Number: CA-ASTRAZENECA-2013SE83719

PATIENT
  Age: 63 Year
  Sex: Female
  Weight: 55 kg

DRUGS (3)
  1. CRESTOR [Suspect]
     Route: 048
  2. LITHIUM CARBONATE [Suspect]
     Route: 048
  3. RAMIPRIL [Concomitant]

REACTIONS (2)
  - Alopecia [Recovered/Resolved]
  - Condition aggravated [Recovered/Resolved]
